FAERS Safety Report 17586722 (Version 2)
Quarter: 2020Q4

REPORT INFORMATION
  Report Type: Spontaneous
  Country: CA (occurrence: CA)
  Receive Date: 20200326
  Receipt Date: 20201102
  Transmission Date: 20210113
  Serious: Yes (Disabling)
  Sender: FDA-Public Use
  Company Number: CA-TEVA-2020-CA-1214949

PATIENT
  Age: 91 Year
  Sex: Male
  Weight: 59.87 kg

DRUGS (4)
  1. ASPIRIN COATED [Concomitant]
     Active Substance: ASPIRIN
  2. KEFLEX [Concomitant]
     Active Substance: CEPHALEXIN
     Dosage: 500 MILLIGRAM DAILY;
  3. LIPITOR [Concomitant]
     Active Substance: ATORVASTATIN CALCIUM
  4. MOXIFLOXACIN. [Suspect]
     Active Substance: MOXIFLOXACIN
     Indication: BRONCHIECTASIS
     Dosage: 400 MILLIGRAM DAILY;
     Route: 048
     Dates: start: 20190309, end: 20190315

REACTIONS (9)
  - Gait disturbance [Recovering/Resolving]
  - Joint swelling [Recovered/Resolved]
  - Tendonitis [Recovering/Resolving]
  - Arthralgia [Recovering/Resolving]
  - Balance disorder [Recovering/Resolving]
  - Nerve injury [Recovering/Resolving]
  - Tendon rupture [Recovering/Resolving]
  - Asthenia [Recovering/Resolving]
  - Muscle disorder [Recovering/Resolving]

NARRATIVE: CASE EVENT DATE: 20190321
